FAERS Safety Report 4695302-8 (Version None)
Quarter: 2005Q2

REPORT INFORMATION
  Report Type: 
  Country: None (occurrence: None)
  Receive Date: 20050126
  Receipt Date: 20050126
  Transmission Date: 20051028
  Serious: No
  Sender: FDA-Public Use
  Company Number: None

PATIENT

DRUGS (1)
  1. REMERON [Suspect]
     Indication: SCHIZOAFFECTIVE DISORDER

REACTIONS (2)
  - CONDITION AGGRAVATED [None]
  - DEPRESSION [None]
